FAERS Safety Report 4473978-8 (Version None)
Quarter: 2004Q4

REPORT INFORMATION
  Report Type: 
  Country: None (occurrence: None)
  Receive Date: 20041008
  Receipt Date: 20040916
  Transmission Date: 20050328
  Serious: Yes (Hospitalization, Other)
  Sender: FDA-Public Use
  Company Number: USA040978530

PATIENT
  Sex: Male

DRUGS (4)
  1. HUMULIN N [Suspect]
     Indication: DIABETES MELLITUS
  2. HUMULIN R [Suspect]
     Indication: DIABETES MELLITUS
  3. HUMALOG [Suspect]
     Indication: DIABETES MELLITUS
     Dosage: 32 U DAY
     Dates: start: 20040722, end: 20040824
  4. LANTUS [Concomitant]

REACTIONS (4)
  - BLOOD GLUCOSE DECREASED [None]
  - CORONARY ARTERY SURGERY [None]
  - DIABETES MELLITUS INADEQUATE CONTROL [None]
  - HEART VALVE REPLACEMENT [None]
